FAERS Safety Report 7672128-4 (Version None)
Quarter: 2011Q3

REPORT INFORMATION
  Report Type: 
  Country: None (occurrence: None)
  Receive Date: 20110809
  Receipt Date: 20110805
  Transmission Date: 20111222
  Serious: Yes (Other)
  Sender: FDA-Public Use
  Company Number: JP-PFIZER INC-2011175177

PATIENT
  Age: 68 Year
  Sex: Male

DRUGS (7)
  1. TANATRIL [Concomitant]
     Indication: HYPERTENSION
     Dosage: 5MG, DAILY
     Route: 048
  2. ALMARL [Concomitant]
     Dosage: UNK
  3. OMEPRAZOLE [Concomitant]
     Dosage: 20MG, DAILY
  4. ADALAT [Concomitant]
     Indication: HYPERTENSION
     Dosage: 40MG, DAILY
     Route: 048
  5. ADALAT [Concomitant]
     Indication: HYPERTENSION
     Dosage: 20MG, DAILY
     Route: 048
  6. TRICHLORMETHIAZIDE [Concomitant]
     Indication: HYPERTENSION
     Dosage: 0.5MG, DAILY
     Route: 048
  7. VARENICLINE TARTRATE [Suspect]
     Indication: NICOTINE DEPENDENCE
     Dosage: 2MG, DAILY
     Route: 048
     Dates: start: 20110514, end: 20110514

REACTIONS (2)
  - CEREBRAL INFARCTION [None]
  - MONOPLEGIA [None]
